FAERS Safety Report 16961915 (Version 1)
Quarter: 2019Q4

REPORT INFORMATION
  Report Type: Spontaneous
  Country: US (occurrence: US)
  Receive Date: 20191025
  Receipt Date: 20191025
  Transmission Date: 20200122
  Serious: Yes (Other)
  Sender: FDA-Public Use
  Company Number: US-PFIZER INC-2019457654

PATIENT
  Age: 12 Year
  Sex: Female
  Weight: 34.93 kg

DRUGS (1)
  1. GENOTROPIN MQ [Suspect]
     Active Substance: SOMATROPIN
     Indication: GROWTH HORMONE DEFICIENCY
     Dosage: 1.8 MG, DAILY (AT BEDTIME)
     Dates: start: 20190917, end: 20191019

REACTIONS (2)
  - Viral pharyngitis [Recovering/Resolving]
  - Pharyngitis streptococcal [Recovering/Resolving]

NARRATIVE: CASE EVENT DATE: 20191014
